FAERS Safety Report 13598839 (Version 1)
Quarter: 2017Q2

REPORT INFORMATION
  Report Type: Spontaneous
  Country: AU (occurrence: AU)
  Receive Date: 20170531
  Receipt Date: 20170531
  Transmission Date: 20170830
  Serious: Yes (Hospitalization, Other)
  Sender: FDA-Public Use
  Company Number: AU-PFIZER INC-HQ1450022MAR2002

PATIENT
  Age: 29 Year
  Sex: Male

DRUGS (12)
  1. METHOTREXATE. [Suspect]
     Active Substance: METHOTREXATE
     Indication: BONE SARCOMA
     Dosage: 12 G/M2
     Route: 042
  2. FOLINIC ACID [Concomitant]
     Active Substance: LEUCOVORIN
     Indication: SEPSIS
     Dosage: EVERY 6 HOURS
     Route: 042
  3. ADRIAMYCIN [Concomitant]
     Active Substance: DOXORUBICIN HYDROCHLORIDE
     Indication: OSTEOSARCOMA
     Dosage: 75 MG/M2, UNK
  4. METHOTREXATE. [Interacting]
     Active Substance: METHOTREXATE
     Dosage: 20.2 G, CYCLIC (DAY 176)
  5. METHOTREXATE. [Interacting]
     Active Substance: METHOTREXATE
     Indication: OSTEOSARCOMA
     Dosage: 23 G, CYCLIC OVER 4HR (DAY 1)
  6. METHOTREXATE. [Interacting]
     Active Substance: METHOTREXATE
     Dosage: 20.2 G, CYCLIC (DAY 260)
  7. CEFEPIME [Concomitant]
     Active Substance: CEFEPIME HYDROCHLORIDE
     Indication: SEPSIS
     Dosage: 1 G, 3X/DAY
     Route: 042
  8. CISPLATIN. [Concomitant]
     Active Substance: CISPLATIN
     Dosage: 60 MG/M2, UNK
  9. IFOSFAMIDE. [Concomitant]
     Active Substance: IFOSFAMIDE
     Indication: OSTEOSARCOMA
     Dosage: 15 MG/M2, UNK
  10. METHOTREXATE. [Interacting]
     Active Substance: METHOTREXATE
     Dosage: 23 G, CYCLIC (DAY 49)
  11. GENTAMICIN. [Concomitant]
     Active Substance: GENTAMICIN
     Dosage: 240 MG, DAILY
  12. VANCOMYCIN HCL [Interacting]
     Active Substance: VANCOMYCIN HYDROCHLORIDE
     Indication: FEBRILE NEUTROPENIA
     Dosage: 1.0 G, 2X/DAY (ON DAY130, DAY 168)
     Route: 042

REACTIONS (5)
  - Renal impairment [Recovered/Resolved]
  - Mucosal inflammation [Unknown]
  - Renal function test abnormal [Unknown]
  - Drug level above therapeutic [Recovered/Resolved]
  - Drug interaction [Recovered/Resolved]
